FAERS Safety Report 9449479 (Version 2)
Quarter: 2013Q3

REPORT INFORMATION
  Report Type: Spontaneous
  Country: US (occurrence: US)
  Receive Date: 20130809
  Receipt Date: 20130816
  Transmission Date: 20140515
  Serious: Yes (Other)
  Sender: FDA-Public Use
  Company Number: US-BIOGENIDEC-2013BI072523

PATIENT
  Age: 58 Year
  Sex: Male

DRUGS (8)
  1. AVONEX [Suspect]
     Indication: MULTIPLE SCLEROSIS
     Route: 030
     Dates: start: 20120921, end: 2013
  2. AVONEX [Suspect]
     Indication: MULTIPLE SCLEROSIS
     Route: 030
     Dates: start: 20130726
  3. ANDROGEL [Concomitant]
  4. BENADRYL ALLERGY [Concomitant]
  5. LISINOPRIL-HYDROCHLOROTHIAZIDE [Concomitant]
  6. LOVAZA [Concomitant]
  7. METFORMIN HCL [Concomitant]
  8. METOPROLOL TARTRATE [Concomitant]

REACTIONS (4)
  - Sepsis [Unknown]
  - Arthritis infective [Not Recovered/Not Resolved]
  - Fall [Recovered/Resolved]
  - Bursitis [Not Recovered/Not Resolved]
